FAERS Safety Report 10276872 (Version 1)
Quarter: 2014Q3

REPORT INFORMATION
  Report Type: Spontaneous
  Country: ZA (occurrence: ZA)
  Receive Date: 20140703
  Receipt Date: 20140703
  Transmission Date: 20150326
  Serious: Yes (Death, Other)
  Sender: FDA-Public Use
  Company Number: ZA-MERCK-1407ZAF000313

PATIENT
  Sex: Female

DRUGS (2)
  1. ZINACEF [Concomitant]
     Active Substance: CEFUROXIME SODIUM
     Dosage: UNK
     Dates: start: 20140421
  2. CANCIDAS [Suspect]
     Active Substance: CASPOFUNGIN ACETATE
     Dosage: UNK
     Dates: start: 20140422, end: 20140624

REACTIONS (2)
  - Adverse event [Unknown]
  - Death [Fatal]

NARRATIVE: CASE EVENT DATE: 2014
